FAERS Safety Report 10404834 (Version 1)
Quarter: 2014Q3

REPORT INFORMATION
  Report Type: Not Available
  Country: IN (occurrence: IN)
  Receive Date: 20140825
  Receipt Date: 20140825
  Transmission Date: 20150326
  Serious: No
  Sender: FDA-Public Use
  Company Number: IN-LUPIN PHARMACEUTICALS INC.-2014-01315

PATIENT
  Age: 21 Year
  Sex: Male

DRUGS (1)
  1. EPILIVE [Suspect]
     Active Substance: LEVETIRACETAM
     Indication: CONVULSION
     Route: 048
     Dates: start: 201305

REACTIONS (2)
  - Headache [Not Recovered/Not Resolved]
  - Dizziness [Not Recovered/Not Resolved]

NARRATIVE: CASE EVENT DATE: 2013
